FAERS Safety Report 8878169 (Version 1)
Quarter: 2012Q4

REPORT INFORMATION
  Report Type: 
  Country: US (occurrence: US)
  Receive Date: 20121025
  Receipt Date: 20121025
  Transmission Date: 20130627
  Serious: No
  Sender: FDA-Public Use
  Company Number: US-AMGEN-USASP2012020847

PATIENT
  Age: 45 Year
  Sex: Female

DRUGS (12)
  1. ENBREL [Suspect]
     Indication: PRODUCT USED FOR UNKNOWN INDICATION
     Dosage: 50 mg, qwk
     Route: 058
  2. METHOTREXATE /00113802/ [Concomitant]
     Dosage: 250 mg, UNK
  3. COUMADIN                           /00014802/ [Concomitant]
     Dosage: 3 mg, UNK
  4. LISINOPRIL [Concomitant]
     Dosage: 20 mg, UNK
  5. CYCLOBENZAPRINE                    /00428402/ [Concomitant]
     Dosage: 10 mg, UNK
  6. CITALOPRAM [Concomitant]
     Dosage: 40 mg, UNK
  7. HYDROXYCHLOROQUINE                 /00072603/ [Concomitant]
     Dosage: 200 mg, UNK
  8. ISONIAZID [Concomitant]
     Dosage: 300 mg, UNK
  9. PREDNISOLONE [Concomitant]
     Dosage: 5 mg, UNK
  10. VITAMIN D /00107901/ [Concomitant]
     Dosage: 400 UNK, UNK
  11. IBUPROFEN                          /00109205/ [Concomitant]
     Dosage: 100 mg, UNK
  12. VITAMIN B6 [Concomitant]
     Dosage: 250 mg, UNK

REACTIONS (1)
  - Stomatitis [Unknown]
